FAERS Safety Report 15319648 (Version 1)
Quarter: 2018Q3

REPORT INFORMATION
  Report Type: Spontaneous
  Country: DK (occurrence: DK)
  Receive Date: 20180827
  Receipt Date: 20180827
  Transmission Date: 20181010
  Serious: Yes (Death, Life-Threatening, Hospitalization)
  Sender: FDA-Public Use
  Company Number: DK-B.I. PHARMACEUTICALS,INC./RIDGEFIELD-2018-12-002875

PATIENT
  Age: 87 Year
  Sex: Male

DRUGS (7)
  1. PRADAXA [Suspect]
     Active Substance: DABIGATRAN ETEXILATE MESYLATE
     Indication: THROMBOSIS PROPHYLAXIS
     Dosage: STYRKE: 110MG
     Route: 048
     Dates: start: 20151127, end: 20180812
  2. ULTIBRO BREEZHALER [Concomitant]
     Active Substance: GLYCOPYRRONIUM\INDACATEROL
     Indication: CHRONIC OBSTRUCTIVE PULMONARY DISEASE
     Dosage: STYRKE: 85+43 MICROGRAM (STRENGTH: 54+43 MICROGRAM)
     Route: 055
     Dates: start: 20170816
  3. VENTOLINE [Concomitant]
     Active Substance: ALBUTEROL
     Indication: BRONCHOSPASM
     Dosage: STYRKE: 0,2 MG I DISKOS; AS REQUIRED; FORM: INHALATION POWDER
     Route: 055
     Dates: start: 20180604
  4. SPIRIX [Concomitant]
     Active Substance: SPIRONOLACTONE
     Indication: DIURETIC THERAPY
     Dosage: STYRKE: 25MG
     Route: 048
     Dates: start: 20160711
  5. VANCOMYCIN [Concomitant]
     Active Substance: VANCOMYCIN
     Indication: ENDOCARDITIS
     Dosage: STYRKE: UKENDT (STRENGTH: UNKNOWN)
     Route: 065
     Dates: start: 20180724
  6. LINEZOLID. [Concomitant]
     Active Substance: LINEZOLID
     Indication: ENDOCARDITIS
     Dosage: STYRKE: UKENDT (STRENGTH: UNKNOWN)
     Route: 065
     Dates: start: 20180724
  7. FURIX [Concomitant]
     Active Substance: FUROSEMIDE
     Indication: DIURETIC THERAPY
     Dosage: STYRKE: 40MG
     Route: 048
     Dates: start: 20160711

REACTIONS (4)
  - Blood creatinine increased [Unknown]
  - Shock haemorrhagic [Fatal]
  - Gastrointestinal haemorrhage [Fatal]
  - Transfusion [Unknown]

NARRATIVE: CASE EVENT DATE: 201808
